FAERS Safety Report 14490398 (Version 2)
Quarter: 2018Q4

REPORT INFORMATION
  Report Type: Report from Study
  Country: FR (occurrence: FR)
  Receive Date: 20180206
  Receipt Date: 20181023
  Transmission Date: 20190204
  Serious: Yes (Other)
  Sender: FDA-Public Use
  Company Number: FR-ACCORD-063187

PATIENT
  Age: 64 Year
  Sex: Female

DRUGS (2)
  1. MYCOPHENOLIC ACID. [Suspect]
     Active Substance: MYCOPHENOLIC ACID
     Indication: SARCOIDOSIS
  2. PREDNISONE. [Suspect]
     Active Substance: PREDNISONE
     Indication: SARCOIDOSIS

REACTIONS (3)
  - Off label use [Unknown]
  - Pelvic inflammatory disease [Recovered/Resolved]
  - Escherichia sepsis [Recovered/Resolved]
